FAERS Safety Report 4944010-4 (Version None)
Quarter: 2006Q1

REPORT INFORMATION
  Report Type: 
  Country: None (occurrence: None)
  Receive Date: 20060310
  Receipt Date: 20060301
  Transmission Date: 20060701
  Serious: Yes (Hospitalization)
  Sender: FDA-Public Use
  Company Number: 2006032551

PATIENT
  Age: 67 Year
  Sex: Female
  Weight: 78.9259 kg

DRUGS (8)
  1. DETROL LA [Suspect]
     Indication: INCONTINENCE
     Dosage: 4 MG (4 MG, 1 IN 1 D),  ORAL
     Route: 048
     Dates: start: 20040101
  2. VERAPAMIL [Concomitant]
  3. LIPITOR [Concomitant]
  4. IMURAN [Concomitant]
  5. ENBREL [Concomitant]
  6. VITAMINS (VITAMINS) [Concomitant]
  7. CALCIUM (CALCIUM) [Concomitant]
  8. FISH OIL (FISH OIL) [Concomitant]

REACTIONS (5)
  - BLADDER OPERATION [None]
  - CONDITION AGGRAVATED [None]
  - DRUG EFFECT DECREASED [None]
  - POLLAKIURIA [None]
  - UNEVALUABLE EVENT [None]
